FAERS Safety Report 4666847-1 (Version None)
Quarter: 2005Q2

REPORT INFORMATION
  Report Type: 
  Country: None (occurrence: None)
  Receive Date: 20050518
  Receipt Date: 20041221
  Transmission Date: 20051028
  Serious: Yes (Other)
  Sender: FDA-Public Use
  Company Number: 2004117588

PATIENT
  Age: 21 Year
  Sex: Female
  Weight: 81.1939 kg

DRUGS (2)
  1. DEPO-PROVERA [Suspect]
     Indication: MENSTRUAL DISCOMFORT
     Dosage: 150 MG ( 150 MG,1ST INJ ) IM,  150 MG ( 150 MG ,MOST RECENT INJ ) IM
     Route: 030
     Dates: start: 19980530, end: 19980530
  2. DEPO-PROVERA [Suspect]
     Indication: MENSTRUAL DISCOMFORT
     Dosage: 150 MG ( 150 MG,1ST INJ ) IM,  150 MG ( 150 MG ,MOST RECENT INJ ) IM
     Route: 030
     Dates: start: 20040916, end: 20040916

REACTIONS (2)
  - OSTEOPENIA [None]
  - OSTEOPOROSIS [None]
